FAERS Safety Report 6431548-6 (Version None)
Quarter: 2009Q4

REPORT INFORMATION
  Report Type: 
  Country: None (occurrence: None)
  Receive Date: 20091106
  Receipt Date: 20091029
  Transmission Date: 20100525
  Serious: Yes (Hospitalization, Other)
  Sender: FDA-Public Use
  Company Number: MX-ELI_LILLY_AND_COMPANY-MX200910003440

PATIENT
  Age: 43 Year
  Sex: Male

DRUGS (1)
  1. BYETTA [Suspect]
     Indication: DIABETES MELLITUS
     Dosage: 5 UG, 2/D
     Route: 058
     Dates: start: 20090901, end: 20090101

REACTIONS (1)
  - PANCREATITIS [None]
